FAERS Safety Report 21487722 (Version 2)
Quarter: 2022Q4

REPORT INFORMATION
  Report Type: Spontaneous
  Country: US (occurrence: US)
  Receive Date: 20221020
  Receipt Date: 20221021
  Transmission Date: 20230113
  Serious: Yes (Other)
  Sender: FDA-Public Use
  Company Number: US-SA-2022SA415937

PATIENT
  Age: 50 Year
  Sex: Male

DRUGS (2)
  1. CEMIPLIMAB [Suspect]
     Active Substance: CEMIPLIMAB
     Indication: Squamous cell carcinoma of skin
     Dosage: UNK
  2. CEMIPLIMAB [Suspect]
     Active Substance: CEMIPLIMAB
     Indication: Lichen planus

REACTIONS (5)
  - Metastases to lymph nodes [Recovered/Resolved]
  - Adrenal insufficiency [Recovered/Resolved]
  - Fatigue [Recovered/Resolved]
  - Hyponatraemia [Recovered/Resolved]
  - Lichen planus [Recovered/Resolved]
